FAERS Safety Report 8012485-2 (Version None)
Quarter: 2011Q4

REPORT INFORMATION
  Report Type: 
  Country: None (occurrence: None)
  Receive Date: 20111229
  Receipt Date: 20111213
  Transmission Date: 20120403
  Serious: Yes (Other)
  Sender: FDA-Public Use
  Company Number: ES-ROCHE-1022493

PATIENT
  Sex: Female
  Weight: 94 kg

DRUGS (2)
  1. METHOTREXATE [Concomitant]
  2. ACTEMRA [Suspect]
     Indication: RHEUMATOID ARTHRITIS
     Route: 042
     Dates: start: 20110117, end: 20110718

REACTIONS (2)
  - SKIN REACTION [None]
  - DERMATITIS PSORIASIFORM [None]
